FAERS Safety Report 11076466 (Version 3)
Quarter: 2018Q1

REPORT INFORMATION
  Report Type: Spontaneous
  Country: US (occurrence: US)
  Receive Date: 20150429
  Receipt Date: 20180315
  Transmission Date: 20180508
  Serious: Yes (Hospitalization, Disabling)
  Sender: FDA-Public Use
  Company Number: US-ENDO PHARMACEUTICALS INC.-201501042

PATIENT
  Age: 58 Year
  Sex: Male
  Weight: 141.4 kg

DRUGS (1)
  1. TESTIM [Suspect]
     Active Substance: TESTOSTERONE
     Indication: ANDROGEN REPLACEMENT THERAPY
     Dosage: UNK UNKNOWN, DAILY
     Route: 062
     Dates: start: 20120615, end: 20130529

REACTIONS (2)
  - Hypertensive crisis [Unknown]
  - Lacunar infarction [Not Recovered/Not Resolved]

NARRATIVE: CASE EVENT DATE: 20130106
